FAERS Safety Report 23208404 (Version 1)
Quarter: 2023Q4

REPORT INFORMATION
  Report Type: Spontaneous
  Country: DE (occurrence: DE)
  Receive Date: 20231121
  Receipt Date: 20231121
  Transmission Date: 20240109
  Serious: Yes (Other)
  Sender: FDA-Public Use
  Company Number: DE-ARISTO PHARMA-CODE-LORA-MORP202103131

PATIENT
  Age: 31 Year
  Sex: Male

DRUGS (15)
  1. CARBAMAZEPINE [Interacting]
     Active Substance: CARBAMAZEPINE
     Indication: Product used for unknown indication
     Dosage: UNK
     Route: 065
  2. CODEINE [Interacting]
     Active Substance: CODEINE
     Indication: Product used for unknown indication
     Dosage: UNK
     Route: 065
  3. MORPHINE [Interacting]
     Active Substance: MORPHINE
     Indication: Product used for unknown indication
     Dosage: UNK
     Route: 065
  4. MORPHINE SULFATE [Suspect]
     Active Substance: MORPHINE SULFATE
     Indication: Product used for unknown indication
     Dosage: UNK
     Route: 065
  5. LORAZEPAM [Interacting]
     Active Substance: LORAZEPAM
     Indication: Product used for unknown indication
     Dosage: UNK
     Route: 065
  6. DIAZEPAM [Interacting]
     Active Substance: DIAZEPAM
     Indication: Product used for unknown indication
     Dosage: UNK
     Route: 065
  7. NORDAZEPAM [Interacting]
     Active Substance: NORDAZEPAM
     Indication: Product used for unknown indication
     Dosage: UNK
     Route: 065
  8. TRAMADOL [Suspect]
     Active Substance: TRAMADOL\TRAMADOL HYDROCHLORIDE
     Indication: Product used for unknown indication
     Dosage: UNK
     Route: 065
  9. PREGABALIN [Suspect]
     Active Substance: PREGABALIN
     Indication: Product used for unknown indication
     Dosage: UNK
     Route: 065
  10. METHADONE [Suspect]
     Active Substance: METHADONE HYDROCHLORIDE
     Indication: Product used for unknown indication
     Dosage: UNK
     Route: 065
  11. OXAZEPAM [Interacting]
     Active Substance: OXAZEPAM
     Indication: Product used for unknown indication
     Dosage: UNK
     Route: 065
  12. CLONAZEPAM [Interacting]
     Active Substance: CLONAZEPAM
     Indication: Product used for unknown indication
     Dosage: UNK
     Route: 065
  13. TEMAZEPAM [Interacting]
     Active Substance: TEMAZEPAM
     Indication: Product used for unknown indication
     Dosage: UNK
     Route: 065
  14. LEVOMETHADONE [Suspect]
     Active Substance: LEVOMETHADONE
     Indication: Product used for unknown indication
     Dosage: UNK
     Route: 065
  15. ACETAMINOPHEN [Concomitant]
     Active Substance: ACETAMINOPHEN
     Dosage: UNK

REACTIONS (20)
  - Dysarthria [Unknown]
  - Delusion [Unknown]
  - Drug abuse [Unknown]
  - Drug interaction [Unknown]
  - Aggression [Unknown]
  - Emotional disorder [Unknown]
  - Gait disturbance [Unknown]
  - Patient uncooperative [Unknown]
  - Bradyphrenia [Unknown]
  - Psychotic disorder [Unknown]
  - Drug dependence [Unknown]
  - Coordination abnormal [Unknown]
  - Bradykinesia [Unknown]
  - Miosis [Unknown]
  - Depressed level of consciousness [Unknown]
  - Restlessness [Unknown]
  - Psychotic behaviour [Unknown]
  - Somnolence [Unknown]
  - Toxicity to various agents [Unknown]
  - Bradykinesia [Unknown]
